FAERS Safety Report 19416410 (Version 1)
Quarter: 2021Q2

REPORT INFORMATION
  Report Type: Spontaneous
  Country: US (occurrence: US)
  Receive Date: 20210615
  Receipt Date: 20210615
  Transmission Date: 20210717
  Serious: Yes (Other)
  Sender: FDA-Public Use
  Company Number: US-AUROBINDO-AUR-APL-2012-05018

PATIENT
  Age: 46 Year
  Sex: Male

DRUGS (1)
  1. SULFAMETHOXAZOLE AND TRIMETHOPRIM TABLETS USP 400/80 MG [Suspect]
     Active Substance: SULFAMETHOXAZOLE\TRIMETHOPRIM
     Indication: CELLULITIS
     Dosage: 2 DOSAGE FORM, TWO TIMES A DAY
     Route: 048

REACTIONS (7)
  - Pancytopenia [Recovering/Resolving]
  - White blood cell count decreased [Recovering/Resolving]
  - Increased tendency to bruise [Recovering/Resolving]
  - Thrombocytopenia [Recovering/Resolving]
  - Rash [Unknown]
  - Pyrexia [Unknown]
  - Anaemia [Recovering/Resolving]
